FAERS Safety Report 16169018 (Version 1)
Quarter: 2019Q2

REPORT INFORMATION
  Report Type: Spontaneous
  Country: US (occurrence: US)
  Receive Date: 20190405
  Receipt Date: 20190405
  Transmission Date: 20190711
  Serious: No
  Sender: FDA-Public Use
  Company Number: None

PATIENT
  Age: 69 Year
  Sex: Female
  Weight: 77.4 kg

DRUGS (1)
  1. LUCEMYRA [Suspect]
     Active Substance: LOFEXIDINE
     Indication: DRUG WITHDRAWAL SYNDROME
     Dosage: ?          QUANTITY:96 TABLET(S);?
     Route: 048
     Dates: start: 20190330, end: 20190402

REACTIONS (6)
  - Asthenia [None]
  - Decreased appetite [None]
  - Poisoning [None]
  - Aptyalism [None]
  - Loss of consciousness [None]
  - Eye contusion [None]

NARRATIVE: CASE EVENT DATE: 20190405
